FAERS Safety Report 7651620-2 (Version None)
Quarter: 2011Q3

REPORT INFORMATION
  Report Type: 
  Country: None (occurrence: None)
  Receive Date: 20110802
  Receipt Date: 20110720
  Transmission Date: 20111222
  Serious: Yes (Disabling)
  Sender: FDA-Public Use
  Company Number: US-MYLANLABS-2011S1015440

PATIENT
  Age: 8 Decade
  Sex: Male

DRUGS (1)
  1. PACLITAXEL [Suspect]
     Indication: METASTATIC MALIGNANT MELANOMA
     Route: 065

REACTIONS (2)
  - VISUAL ACUITY REDUCED [None]
  - MACULOPATHY [None]
